FAERS Safety Report 20977082 (Version 1)
Quarter: 2022Q2

REPORT INFORMATION
  Report Type: Spontaneous
  Country: CA (occurrence: CA)
  Receive Date: 20220617
  Receipt Date: 20220617
  Transmission Date: 20220721
  Serious: Yes (Death, Congenital Anomaly, Other)
  Sender: FDA-Public Use
  Company Number: CA-BoehringerIngelheim-2022-BI-176683

PATIENT

DRUGS (1)
  1. TELMISARTAN [Suspect]
     Active Substance: TELMISARTAN
     Indication: Hypertension
     Route: 064

REACTIONS (10)
  - Anuria [Fatal]
  - Foetal exposure during pregnancy [Fatal]
  - Foetal malformation [Fatal]
  - Hypocalvaria [Fatal]
  - Hypotension [Fatal]
  - Limb deformity [Fatal]
  - Potter^s syndrome [Fatal]
  - Renal aplasia [Fatal]
  - Renal vein thrombosis [Fatal]
  - Respiratory failure [Fatal]
